FAERS Safety Report 7469952-X (Version None)
Quarter: 2011Q2

REPORT INFORMATION
  Report Type: 
  Country: None (occurrence: None)
  Receive Date: 20110510
  Receipt Date: 20101117
  Transmission Date: 20111010
  Serious: Yes (Life-Threatening, Hospitalization)
  Sender: FDA-Public Use
  Company Number: GB-ROCHE-744463

PATIENT

DRUGS (5)
  1. HYDROCORTISONE [Suspect]
     Indication: LIVER TRANSPLANT
     Route: 042
  2. ZENAPAX [Suspect]
     Route: 065
  3. TACROLIMUS [Suspect]
     Route: 065
  4. MYCOPHENOLATE MOFETIL [Suspect]
     Route: 065
  5. PREDNISOLONE [Suspect]
     Route: 065

REACTIONS (8)
  - GRAFT DYSFUNCTION [None]
  - VOMITING [None]
  - ENCEPHALOPATHY [None]
  - METABOLIC ACIDOSIS [None]
  - MELAENA [None]
  - ABDOMINAL DISTENSION [None]
  - ARTERIAL HAEMORRHAGE [None]
  - PYREXIA [None]
